FAERS Safety Report 4856102-9 (Version None)
Quarter: 2005Q4

REPORT INFORMATION
  Report Type: 
  Country: None (occurrence: None)
  Receive Date: 20051216
  Receipt Date: 20050829
  Transmission Date: 20060501
  Serious: Yes (Death, Hospitalization, Other)
  Sender: FDA-Public Use
  Company Number: US-MERCK-0508USA04653

PATIENT
  Age: 82 Year
  Sex: Female
  Weight: 41 kg

DRUGS (1)
  1. VIOXX [Suspect]
     Indication: RAYNAUD'S PHENOMENON
     Route: 048
     Dates: start: 19990101, end: 20020101

REACTIONS (6)
  - BREAST CANCER [None]
  - CEREBROVASCULAR ACCIDENT [None]
  - DEATH [None]
  - INTESTINAL OBSTRUCTION [None]
  - OVERDOSE [None]
  - PNEUMONIA [None]
